FAERS Safety Report 21824183 (Version 1)
Quarter: 2023Q1

REPORT INFORMATION
  Report Type: Spontaneous
  Country: BR (occurrence: BR)
  Receive Date: 20230105
  Receipt Date: 20230105
  Transmission Date: 20230418
  Serious: Yes (Death, Other)
  Sender: FDA-Public Use
  Company Number: BR-BRISTOL-MYERS SQUIBB COMPANY-2023-001931

PATIENT
  Age: 76 Year

DRUGS (1)
  1. REVLIMID [Suspect]
     Active Substance: LENALIDOMIDE
     Indication: Product used for unknown indication
     Dosage: FREQ : 21 DAYS; 15 DAYS,  REDUCED THE TIME OF USE OF LENALIDOMIDE FROM 21 TO 15 DAYS
     Route: 048
     Dates: start: 20220614

REACTIONS (1)
  - Death [Fatal]
